FAERS Safety Report 5210663-9 (Version None)
Quarter: 2007Q1

REPORT INFORMATION
  Report Type: 
  Country: None (occurrence: None)
  Receive Date: 20070116
  Receipt Date: 20070116
  Transmission Date: 20070707
  Serious: No
  Sender: FDA-Public Use
  Company Number: None

PATIENT
  Age: 15 Year
  Sex: Female
  Weight: 45.3597 kg

DRUGS (1)
  1. NICOMIDE TAB [Suspect]
     Indication: ACNE
     Dosage: ONE TABLET TWICE DAILY ORALLY
     Route: 048
     Dates: start: 20060301, end: 20061201

REACTIONS (3)
  - ABNORMAL BEHAVIOUR [None]
  - DENTAL CARIES [None]
  - TOOTH DECALCIFICATION [None]
